FAERS Safety Report 16437861 (Version 1)
Quarter: 2019Q2

REPORT INFORMATION
  Report Type: Report from Study
  Country: None (occurrence: CA)
  Receive Date: 20190616
  Receipt Date: 20190616
  Transmission Date: 20190711
  Serious: Yes (Other)
  Sender: FDA-Public Use
  Company Number: CA-ABBVIE-19K-028-2818131-00

PATIENT
  Age: 64 Year
  Sex: Male

DRUGS (1)
  1. HUMIRA [Suspect]
     Active Substance: ADALIMUMAB
     Indication: CROHN^S DISEASE
     Route: 058
     Dates: start: 20171207

REACTIONS (10)
  - Stoma site haemorrhage [Unknown]
  - Colostomy [Unknown]
  - Loose tooth [Not Recovered/Not Resolved]
  - Fall [Recovered/Resolved]
  - Ligament sprain [Unknown]
  - Skin haemorrhage [Not Recovered/Not Resolved]
  - Haematochezia [Not Recovered/Not Resolved]
  - Acne [Not Recovered/Not Resolved]
  - Mastication disorder [Unknown]
  - Rash generalised [Not Recovered/Not Resolved]

NARRATIVE: CASE EVENT DATE: 201904
